FAERS Safety Report 5597255-7 (Version None)
Quarter: 2007Q4

REPORT INFORMATION
  Report Type: 
  Country: None (occurrence: None)
  Receive Date: 20071221
  Receipt Date: 20070910
  Transmission Date: 20080405
  Serious: No
  Sender: FDA-Public Use
  Company Number: SPVI-2007-04129

PATIENT
  Age: 16 Year
  Sex: Female

DRUGS (2)
  1. VYVANSE [Suspect]
     Dosage: 1/2 25 MG, ORAL
     Route: 048
  2. ADDERALL XR (AMPHETAMINE ASPARTATE, AMPHETAMINE SULFATE, DEXTROAMPHETA [Concomitant]

REACTIONS (1)
  - URTICARIA [None]
